FAERS Safety Report 10162823 (Version 4)
Quarter: 2014Q4

REPORT INFORMATION
  Report Type: Spontaneous
  Country: US (occurrence: US)
  Receive Date: 20140509
  Receipt Date: 20141222
  Transmission Date: 20150528
  Serious: Yes (Hospitalization, Disabling, Other)
  Sender: FDA-Public Use
  Company Number: US-009507513-1405USA001200

PATIENT
  Sex: Female

DRUGS (5)
  1. FOSAMAX [Suspect]
     Active Substance: ALENDRONATE SODIUM
     Indication: OSTEOPOROSIS
     Dosage: 70 MG, UNK
     Route: 048
     Dates: start: 20070706, end: 20080320
  2. FOSAMAX [Suspect]
     Active Substance: ALENDRONATE SODIUM
     Indication: OSTEOPOROSIS
     Dosage: 70 MG, UNK
     Route: 048
     Dates: start: 2012, end: 20120501
  3. ALENDRONATE SODIUM. [Suspect]
     Active Substance: ALENDRONATE SODIUM
     Indication: OSTEOPOROSIS
     Dosage: 70 MG, QW
     Route: 048
     Dates: start: 20010719, end: 20070104
  4. ALENDRONATE SODIUM. [Suspect]
     Active Substance: ALENDRONATE SODIUM
     Indication: OSTEOPOROSIS
     Dosage: 70 MG, UNK
     Route: 048
     Dates: start: 20080923, end: 20120129
  5. ALENDRONATE SODIUM. [Suspect]
     Active Substance: ALENDRONATE SODIUM
     Indication: OSTEOPOROSIS
     Dosage: 70 MG, UNK
     Route: 048
     Dates: start: 20080320, end: 2008

REACTIONS (18)
  - Fracture malunion [Recovering/Resolving]
  - Femur fracture [Recovering/Resolving]
  - Fall [Unknown]
  - Transfusion [Unknown]
  - Femur fracture [Not Recovered/Not Resolved]
  - Colon cancer [Unknown]
  - Hypertension [Unknown]
  - Arthritis [Unknown]
  - Periodontal disease [Unknown]
  - Tooth extraction [Unknown]
  - Hypercholesterolaemia [Unknown]
  - Low turnover osteopathy [Not Recovered/Not Resolved]
  - Internal fixation of fracture [Recovered/Resolved]
  - Osteoporosis [Not Recovered/Not Resolved]
  - Intramedullary rod insertion [Recovering/Resolving]
  - Medical device removal [Recovered/Resolved]
  - Stress fracture [Not Recovered/Not Resolved]
  - Depression [Unknown]

NARRATIVE: CASE EVENT DATE: 2005
